FAERS Safety Report 9025434 (Version 4)
Quarter: 2013Q3

REPORT INFORMATION
  Report Type: Spontaneous
  Country: US (occurrence: US)
  Receive Date: 20130122
  Receipt Date: 20130926
  Transmission Date: 20140515
  Serious: Yes (Hospitalization)
  Sender: FDA-Public Use
  Company Number: US-B.I. PHARMACEUTICALS,INC./RIDGEFIELD-2012-BP-23874BP

PATIENT
  Age: 57 Year
  Sex: Male
  Weight: 108.86 kg

DRUGS (9)
  1. PRADAXA [Suspect]
     Indication: ATRIAL FIBRILLATION
     Dosage: 300 MG
     Route: 048
     Dates: start: 20110111, end: 20110812
  2. PRADAXA [Suspect]
     Indication: ANTICOAGULANT THERAPY
  3. ACTOS [Concomitant]
     Dates: start: 2002
  4. ALLOPURINOL [Concomitant]
     Dates: start: 2009
  5. DIGOXIN [Concomitant]
     Dates: start: 2010
  6. LANTUS [Concomitant]
     Dates: start: 2002
  7. METFORMIN HCL [Concomitant]
     Dates: start: 2002
  8. METOPROLOL [Concomitant]
     Dates: start: 2002
  9. NOVOLOG [Concomitant]
     Dates: start: 2002

REACTIONS (4)
  - Rectal haemorrhage [Recovered/Resolved]
  - Gastrointestinal haemorrhage [Unknown]
  - Haemorrhage [Unknown]
  - Anaemia [Unknown]
